FAERS Safety Report 11155665 (Version 1)
Quarter: 2015Q2

REPORT INFORMATION
  Report Type: Spontaneous
  Country: US (occurrence: None)
  Receive Date: 20150601
  Receipt Date: 20150601
  Transmission Date: 20150821
  Serious: Yes (Other)
  Sender: FDA-Public Use
  Company Number: None

PATIENT
  Age: 62 Year
  Sex: Female
  Weight: 67.13 kg

DRUGS (11)
  1. LIOTHVROMINE SR [Concomitant]
  2. DOXYCYCLINE HYCLATE. [Suspect]
     Active Substance: DOXYCYCLINE HYCLATE
     Indication: ERYTHEMA MIGRANS
     Dosage: STRENGTH:  100MG, QUANTITY: 42 PILLS (TOOK 4), FREQUENCY:  TWICE DAILY, ROUTE: BY MOUTH
     Route: 048
     Dates: start: 20150523, end: 20150524
  3. LEVOTHVIOXINE [Concomitant]
  4. CALCIUM [Concomitant]
     Active Substance: CALCIUM
  5. LUTEIN [Concomitant]
     Active Substance: LUTEIN
  6. BILBERRY [Concomitant]
     Active Substance: BILBERRY
  7. VITAMIN C [Concomitant]
     Active Substance: ASCORBIC ACID
  8. PROBIOTIC [Concomitant]
     Active Substance: PROBIOTICS NOS
  9. VIT K ANTAGONISTS [Concomitant]
     Active Substance: UNSPECIFIED INGREDIENT
  10. FISH OIL [Concomitant]
     Active Substance: FISH OIL
  11. MAGNESIUM??? [Concomitant]

REACTIONS (3)
  - Swelling face [None]
  - Urticaria [None]
  - Rash [None]

NARRATIVE: CASE EVENT DATE: 20150524
